FAERS Safety Report 13691430 (Version 1)
Quarter: 2017Q2

REPORT INFORMATION
  Report Type: Spontaneous
  Country: US (occurrence: US)
  Receive Date: 20170626
  Receipt Date: 20170626
  Transmission Date: 20170830
  Serious: Yes (Other)
  Sender: FDA-Public Use
  Company Number: US-ROCHE-704574

PATIENT
  Age: 29 Year
  Sex: Male
  Weight: 96 kg

DRUGS (6)
  1. CELLCEPT [Suspect]
     Active Substance: MYCOPHENOLATE MOFETIL\MYCOPHENOLATE MOFETIL HYDROCHLORIDE
     Indication: PROPHYLAXIS AGAINST TRANSPLANT REJECTION
     Dosage: FREQUENCY: TWICE
     Route: 042
     Dates: start: 20100517, end: 20100517
  2. PROPOFOL. [Concomitant]
     Active Substance: PROPOFOL
     Route: 065
  3. EPINEPHRINE. [Concomitant]
     Active Substance: EPINEPHRINE
     Route: 065
  4. INSULIN [Concomitant]
     Active Substance: INSULIN NOS
     Route: 065
  5. CELLCEPT [Suspect]
     Active Substance: MYCOPHENOLATE MOFETIL\MYCOPHENOLATE MOFETIL HYDROCHLORIDE
     Indication: PROPHYLAXIS AGAINST TRANSPLANT REJECTION
     Dosage: FREQUENCY: ONCE.
     Route: 048
     Dates: start: 20100516, end: 20100516
  6. VASOPRESSIN. [Concomitant]
     Active Substance: VASOPRESSIN
     Route: 065

REACTIONS (3)
  - Tachycardia [Unknown]
  - Blood pressure increased [Unknown]
  - Haemorrhage [Recovered/Resolved]

NARRATIVE: CASE EVENT DATE: 20100517
